FAERS Safety Report 9881691 (Version 1)
Quarter: 2014Q1

REPORT INFORMATION
  Report Type: Spontaneous
  Country: US (occurrence: None)
  Receive Date: 20140205
  Receipt Date: 20140205
  Transmission Date: 20141002
  Serious: Yes (Hospitalization)
  Sender: FDA-Public Use
  Company Number: 7266233

PATIENT
  Age: 85 Year
  Sex: Female

DRUGS (5)
  1. LEVOTHYROXINE (LEVOTHYROXINE) [Suspect]
     Indication: PRODUCT USED FOR UNKNOWN INDICATION
  2. METOPROLOL ( METOPROLOL) [Concomitant]
  3. FUROSEMIDE ( FUROSEMIDE) [Concomitant]
  4. SPIRONOLACTONE ( SPIRONOLACTONE) [Concomitant]
  5. COUMADIN/000148021 (WARFARIN SODIUM) [Concomitant]

REACTIONS (5)
  - Hypoglycaemia [None]
  - Night sweats [None]
  - Dizziness [None]
  - Hyponatraemia [None]
  - Ventricular tachycardia [None]
